FAERS Safety Report 19269823 (Version 3)
Quarter: 2024Q4

REPORT INFORMATION
  Report Type: Spontaneous
  Country: IT (occurrence: IT)
  Receive Date: 20210518
  Receipt Date: 20241115
  Transmission Date: 20250115
  Serious: Yes (Hospitalization, Other)
  Sender: ACCORD
  Company Number: IT-MLMSERVICE-20210429-2859662-1

PATIENT
  Age: 54 Year
  Sex: Male

DRUGS (3)
  1. CARBOPLATIN [Suspect]
     Active Substance: CARBOPLATIN
     Indication: Lung adenocarcinoma
     Dates: start: 20200601
  2. PEMETREXED [Suspect]
     Active Substance: PEMETREXED
     Indication: Lung adenocarcinoma
     Dates: start: 20200601
  3. PEMBROLIZUMAB [Suspect]
     Active Substance: PEMBROLIZUMAB
     Indication: Lung adenocarcinoma
     Dates: start: 202006

REACTIONS (3)
  - Acute myocardial infarction [Recovering/Resolving]
  - Atrial fibrillation [Recovering/Resolving]
  - Pericarditis [Recovering/Resolving]

NARRATIVE: CASE EVENT DATE: 20200601
